FAERS Safety Report 5369973-7 (Version None)
Quarter: 2007Q2

REPORT INFORMATION
  Report Type: 
  Country: None (occurrence: None)
  Receive Date: 20070626
  Receipt Date: 20070618
  Transmission Date: 20071010
  Serious: Yes (Hospitalization)
  Sender: FDA-Public Use
  Company Number: PHEH2007US06025

PATIENT

DRUGS (2)
  1. ZELNORM [Suspect]
     Dosage: UNK, UNK
     Route: 048
     Dates: end: 20070402
  2. AMITIZA [Suspect]
     Dates: start: 20070403

REACTIONS (2)
  - ACUTE RESPIRATORY DISTRESS SYNDROME [None]
  - DYSPNOEA [None]
